FAERS Safety Report 8594821-1 (Version None)
Quarter: 2012Q3

REPORT INFORMATION
  Report Type: 
  Country: None (occurrence: None)
  Receive Date: 20120815
  Receipt Date: 20120801
  Transmission Date: 20120928
  Serious: Yes (Other)
  Sender: FDA-Public Use
  Company Number: IT-MYLANLABS-2012S1015854

PATIENT
  Age: 58 Year
  Sex: Female

DRUGS (1)
  1. ANASTROZOLE [Suspect]
     Indication: BREAST CANCER
     Route: 048
     Dates: start: 20111023, end: 20111027

REACTIONS (4)
  - ABDOMINAL PAIN UPPER [None]
  - DEPRESSED LEVEL OF CONSCIOUSNESS [None]
  - HEADACHE [None]
  - DIARRHOEA [None]
